FAERS Safety Report 6557242-9 (Version None)
Quarter: 2010Q1

REPORT INFORMATION
  Report Type: 
  Country: None (occurrence: None)
  Receive Date: 20100129
  Receipt Date: 20100125
  Transmission Date: 20100710
  Serious: Yes (Hospitalization)
  Sender: FDA-Public Use
  Company Number: US-BIOGENIDEC-2009BI024393

PATIENT
  Age: 43 Year
  Sex: Female

DRUGS (11)
  1. TYSABRI [Suspect]
     Indication: MULTIPLE SCLEROSIS
     Route: 042
     Dates: start: 20090731, end: 20090731
  2. DIAZEPAM [Concomitant]
  3. BACLOFEN [Concomitant]
  4. OXYBUTYNIN [Concomitant]
  5. LEXAPRO [Concomitant]
  6. CYMBALTA [Concomitant]
  7. ATENOLOL [Concomitant]
  8. MORPHINE [Concomitant]
  9. NORETHINDRONE [Concomitant]
  10. PROVIGIL [Concomitant]
  11. LACTULOSE [Concomitant]

REACTIONS (3)
  - MIGRAINE [None]
  - PARAESTHESIA [None]
  - URINARY TRACT INFECTION [None]
